FAERS Safety Report 5638075-4 (Version None)
Quarter: 2008Q1

REPORT INFORMATION
  Report Type: 
  Country: None (occurrence: None)
  Receive Date: 20080226
  Receipt Date: 20080213
  Transmission Date: 20080703
  Serious: Yes (Hospitalization)
  Sender: FDA-Public Use
  Company Number: US-SANOFI-SYNTHELABO-A03200702272

PATIENT
  Sex: Female
  Weight: 68 kg

DRUGS (28)
  1. AMBIEN [Suspect]
     Indication: INSOMNIA
     Route: 048
     Dates: start: 20000101, end: 20030301
  2. AMBIEN [Suspect]
     Route: 048
     Dates: start: 20041101
  3. AMBIEN [Suspect]
     Dosage: UNK
     Route: 048
     Dates: start: 20060915, end: 20070101
  4. AMBIEN [Suspect]
     Dosage: UNK
     Route: 048
     Dates: start: 20061228
  5. HYDROXYZINE [Concomitant]
     Indication: DRUG USE FOR UNKNOWN INDICATION
     Route: 048
  6. CHLORHEXIDINE GLUCONATE [Concomitant]
     Indication: DRUG USE FOR UNKNOWN INDICATION
     Dosage: 0.12 %
     Route: 048
  7. IBUPROFEN [Concomitant]
     Indication: DRUG USE FOR UNKNOWN INDICATION
     Route: 048
  8. TRIMETHOBENZAMIDE [Concomitant]
     Indication: DRUG USE FOR UNKNOWN INDICATION
     Route: 048
  9. PAXIL CR [Concomitant]
     Indication: DRUG USE FOR UNKNOWN INDICATION
     Route: 048
  10. VICODIN [Concomitant]
     Dosage: 5/500 MG - 8 TO 10 TABLETS DAILY
     Route: 065
  11. PHISOHEX [Concomitant]
     Dosage: 3 %
     Route: 061
  12. PREDNISONE TAB [Concomitant]
     Indication: DRUG USE FOR UNKNOWN INDICATION
     Route: 048
  13. FUROSEMIDE [Concomitant]
     Indication: DRUG USE FOR UNKNOWN INDICATION
     Route: 048
  14. CEPHALEXIN [Concomitant]
     Indication: DRUG USE FOR UNKNOWN INDICATION
     Route: 048
  15. CLONAZEPAM [Concomitant]
     Indication: DRUG USE FOR UNKNOWN INDICATION
     Route: 048
  16. SERZONE [Concomitant]
     Indication: DRUG USE FOR UNKNOWN INDICATION
     Dosage: UNK
     Route: 048
  17. ZOLOFT [Concomitant]
     Indication: DRUG USE FOR UNKNOWN INDICATION
     Dosage: UNK
     Route: 065
  18. ACETAMINOPHEN AND HYDROCODONE BITARTRATE [Concomitant]
     Indication: DRUG USE FOR UNKNOWN INDICATION
     Dosage: 5/500MG
     Route: 048
     Dates: start: 20061122, end: 20060101
  19. TRILEPTAL [Concomitant]
     Indication: DRUG USE FOR UNKNOWN INDICATION
     Route: 048
     Dates: start: 20061120
  20. FOSAMAX [Concomitant]
     Indication: DRUG USE FOR UNKNOWN INDICATION
  21. ALPRAZOLAM [Concomitant]
     Indication: DRUG USE FOR UNKNOWN INDICATION
     Route: 048
     Dates: start: 20061006, end: 20060101
  22. SEROQUEL [Concomitant]
     Indication: DRUG USE FOR UNKNOWN INDICATION
     Route: 048
     Dates: start: 20060810, end: 20060101
  23. FLUOXETINE [Concomitant]
     Indication: DRUG USE FOR UNKNOWN INDICATION
     Route: 048
     Dates: start: 20060616
  24. AMBIEN CR [Suspect]
     Indication: INSOMNIA
     Dosage: UNK
     Route: 048
     Dates: start: 20060907, end: 20060101
  25. ACULAR [Concomitant]
     Route: 047
     Dates: start: 20071026
  26. AMITRIPTYLINE HCL [Concomitant]
     Route: 048
     Dates: start: 20061026
  27. ROZEREM [Concomitant]
     Route: 048
     Dates: start: 20061015
  28. TOPAMAX [Concomitant]
     Route: 048
     Dates: start: 20060828, end: 20070201

REACTIONS (24)
  - AMNESIA [None]
  - ANXIETY [None]
  - BALANCE DISORDER [None]
  - CHEST PAIN [None]
  - CONFUSIONAL STATE [None]
  - CONTUSION [None]
  - DEPRESSION [None]
  - DRUG ABUSE [None]
  - EATING DISORDER [None]
  - FALL [None]
  - FEELING DRUNK [None]
  - HAND FRACTURE [None]
  - IMPAIRED DRIVING ABILITY [None]
  - LIMB INJURY [None]
  - LOSS OF CONSCIOUSNESS [None]
  - POST-TRAUMATIC STRESS DISORDER [None]
  - PSYCHIATRIC SYMPTOM [None]
  - ROAD TRAFFIC ACCIDENT [None]
  - SOMNAMBULISM [None]
  - SUICIDAL IDEATION [None]
  - SUICIDE ATTEMPT [None]
  - SYNOVIAL CYST [None]
  - TRIGGER FINGER [None]
  - WEIGHT INCREASED [None]
